FAERS Safety Report 5524589-4 (Version None)
Quarter: 2007Q4

REPORT INFORMATION
  Report Type: 
  Country: None (occurrence: None)
  Receive Date: 20071123
  Receipt Date: 20071115
  Transmission Date: 20080405
  Serious: Yes (Other)
  Sender: FDA-Public Use
  Company Number: GB-BAYER-200711202BNE

PATIENT
  Age: 74 Year

DRUGS (1)
  1. NEXAVAR [Suspect]
     Route: 048

REACTIONS (1)
  - FURUNCLE [None]
